FAERS Safety Report 17604890 (Version 1)
Quarter: 2020Q1

REPORT INFORMATION
  Report Type: Spontaneous
  Country: US (occurrence: US)
  Receive Date: 20200330
  Receipt Date: 20200330
  Transmission Date: 20200409
  Serious: No
  Sender: FDA-Public Use
  Company Number: None

PATIENT
  Sex: Female

DRUGS (1)
  1. PIQRAY [Suspect]
     Active Substance: ALPELISIB
     Indication: PRODUCT USED FOR UNKNOWN INDICATION
     Route: 048
     Dates: start: 20200219, end: 20200330

REACTIONS (7)
  - Stomatitis [None]
  - Nausea [None]
  - Vomiting [None]
  - Pyrexia [None]
  - Chills [None]
  - Pruritus [None]
  - Diarrhoea [None]
